FAERS Safety Report 5430718-3 (Version None)
Quarter: 2007Q3

REPORT INFORMATION
  Report Type: 
  Country: None (occurrence: None)
  Receive Date: 20070830
  Receipt Date: 20061113
  Transmission Date: 20080115
  Serious: Yes (Other)
  Sender: FDA-Public Use
  Company Number: A0623695A

PATIENT
  Age: 31 Year
  Sex: Female
  Weight: 53.2 kg

DRUGS (2)
  1. WELLBUTRIN XL [Suspect]
     Indication: ANXIETY
     Dosage: 150MG PER DAY
     Route: 048
     Dates: start: 20060830, end: 20061005
  2. LEVORA 0.15/30-28 [Concomitant]

REACTIONS (4)
  - ANGIOEDEMA [None]
  - ARTHRALGIA [None]
  - RASH [None]
  - RESTLESSNESS [None]
